FAERS Safety Report 6394972-6 (Version None)
Quarter: 2009Q4

REPORT INFORMATION
  Report Type: 
  Country: None (occurrence: None)
  Receive Date: 20091009
  Receipt Date: 20091001
  Transmission Date: 20100525
  Serious: Yes (Disabling, Other)
  Sender: FDA-Public Use
  Company Number: BR-PFIZER INC-2009252650

PATIENT
  Age: 41 Year

DRUGS (1)
  1. CELEBRA [Suspect]
     Indication: SPONDYLITIS
     Dosage: 200 MG, UNK
     Route: 048
     Dates: start: 19940101, end: 20040101

REACTIONS (4)
  - ABASIA [None]
  - DEFORMITY [None]
  - DEVICE OCCLUSION [None]
  - INFARCTION [None]
